FAERS Safety Report 21229364 (Version 3)
Quarter: 2022Q3

REPORT INFORMATION
  Report Type: Report from Study
  Country: IN (occurrence: IN)
  Receive Date: 20220818
  Receipt Date: 20220902
  Transmission Date: 20221027
  Serious: Yes (Hospitalization)
  Sender: FDA-Public Use
  Company Number: IN-JNJFOC-20220822818

PATIENT
  Age: 77 Year
  Sex: Male
  Weight: 76 kg

DRUGS (13)
  1. AMIVANTAMAB [Suspect]
     Active Substance: AMIVANTAMAB
     Indication: Non-small cell lung cancer metastatic
     Dosage: MOST RECENT DOSE ON 02-AUG-2022
     Route: 042
     Dates: start: 20210706
  2. METFORMIN HYDROCHLORIDE [Concomitant]
     Active Substance: METFORMIN HYDROCHLORIDE
     Indication: Diabetes mellitus
     Route: 048
     Dates: start: 20180101
  3. METFORMIN HYDROCHLORIDE [Concomitant]
     Active Substance: METFORMIN HYDROCHLORIDE
     Route: 048
     Dates: start: 20220809
  4. GEMINOR [Concomitant]
     Indication: Diabetes mellitus
     Route: 048
     Dates: start: 20180101
  5. TELMISARTAN [Concomitant]
     Active Substance: TELMISARTAN
     Indication: Hypertension
     Route: 048
     Dates: start: 20180101
  6. MUPIROCIN [Concomitant]
     Active Substance: MUPIROCIN
     Indication: Paronychia
     Dosage: 0
     Route: 061
     Dates: start: 20210910
  7. MINOCYCLINE [Concomitant]
     Active Substance: MINOCYCLINE HYDROCHLORIDE
     Indication: Rash
     Route: 048
     Dates: start: 20210910
  8. CLINDAMYCIN [Concomitant]
     Active Substance: CLINDAMYCIN
     Indication: Rash
     Route: 048
     Dates: start: 20210910
  9. ALBUMIN HUMAN [Concomitant]
     Active Substance: ALBUMIN HUMAN
     Route: 048
     Dates: start: 20211118
  10. CALCIUM\CHOLECALCIFEROL [Concomitant]
     Active Substance: CALCIUM\CHOLECALCIFEROL
     Route: 048
     Dates: start: 20220118
  11. HALOVATE OINMENT [Concomitant]
     Indication: Rash
     Dosage: DOSE: 0.05
     Route: 061
     Dates: start: 20220202
  12. HALOVATE OINMENT [Concomitant]
     Indication: Paronychia
     Dosage: DOSE: 0.05
     Route: 061
     Dates: start: 20220607
  13. HALOVATE OINMENT [Concomitant]
     Dosage: 00.5 DOSE
     Route: 061
     Dates: start: 20220719

REACTIONS (1)
  - Rash [Not Recovered/Not Resolved]

NARRATIVE: CASE EVENT DATE: 20220808
